FAERS Safety Report 19905340 (Version 3)
Quarter: 2021Q4

REPORT INFORMATION
  Report Type: Spontaneous
  Country: US (occurrence: US)
  Receive Date: 20211001
  Receipt Date: 20211108
  Transmission Date: 20220304
  Serious: No
  Sender: FDA-Public Use
  Company Number: US-APOTEX-2021AP043191

PATIENT
  Sex: Male

DRUGS (6)
  1. MOMETASONE FUROATE [Suspect]
     Active Substance: MOMETASONE FUROATE
     Indication: Asthma
     Dosage: 2 SPRAYS ON NOSE TWICE A DAY (MORNING AND NIGHT)
     Route: 045
     Dates: start: 2021
  2. MOMETASONE FUROATE [Suspect]
     Active Substance: MOMETASONE FUROATE
     Indication: Hypersensitivity
  3. CLARITINE D [Concomitant]
     Indication: Asthma
     Dosage: 1 PILL, QD
     Route: 065
  4. CLARITINE D [Concomitant]
     Indication: Hypersensitivity
  5. BREO ELLIPTA [Concomitant]
     Active Substance: FLUTICASONE FUROATE\VILANTEROL TRIFENATATE
     Indication: Asthma
     Dosage: 1 PUFF, QD
     Route: 065
  6. AZELASTINE [AZELASTINE] [Concomitant]
     Indication: Hypersensitivity
     Dosage: 2 SPRAY IN EACH NOSTRIL
     Route: 065

REACTIONS (2)
  - Product odour abnormal [Unknown]
  - No adverse event [Unknown]

NARRATIVE: CASE EVENT DATE: 20210101
